FAERS Safety Report 10223212 (Version 1)
Quarter: 2014Q2

REPORT INFORMATION
  Report Type: Report from Study
  Country: GB (occurrence: GB)
  Receive Date: 20140608
  Receipt Date: 20140608
  Transmission Date: 20141212
  Serious: Yes (Disabling)
  Sender: FDA-Public Use
  Company Number: GB-ROCHE-1413341

PATIENT
  Sex: Male
  Weight: 81 kg

DRUGS (1)
  1. TOCILIZUMAB [Suspect]
     Indication: RHEUMATOID ARTHRITIS
     Dosage: LAST DOSE PRIOR TO SAE WAS ON 30/SEP/2013.
     Route: 065
     Dates: start: 20121217, end: 20130930

REACTIONS (1)
  - Pain [Unknown]
